FAERS Safety Report 25888307 (Version 2)
Quarter: 2025Q4

REPORT INFORMATION
  Report Type: Spontaneous
  Country: US (occurrence: None)
  Receive Date: 20251007
  Receipt Date: 20251103
  Transmission Date: 20260117
  Serious: Yes (Death, Hospitalization)
  Sender: CHIESI
  Company Number: US-CHIESI-2025CHF06988

PATIENT
  Age: 62 Year
  Sex: Male

DRUGS (1)
  1. MYCAPSSA [Suspect]
     Active Substance: OCTREOTIDE
     Indication: Acromegaly
     Dosage: 20 MILLIGRAM, BID

REACTIONS (4)
  - Death [Fatal]
  - Cerebral haemorrhage [Unknown]
  - Fall [Unknown]
  - Product dose omission issue [Recovered/Resolved]
